FAERS Safety Report 25919023 (Version 1)
Quarter: 2025Q4

REPORT INFORMATION
  Report Type: Spontaneous
  Country: US (occurrence: None)
  Receive Date: 20251013
  Receipt Date: 20251013
  Transmission Date: 20260117
  Serious: Yes (Hospitalization)
  Sender: FDA-CTU
  Company Number: None

PATIENT
  Sex: Male

DRUGS (3)
  1. VYNDAMAX [Suspect]
     Active Substance: TAFAMIDIS
     Indication: Cardiomyopathy
     Dosage: ? TAKE 1 CAPSULE BY MOUTH DAILY?
     Route: 048
     Dates: start: 20250401
  2. HYDROCORT CRE [Concomitant]
  3. METOPROLOL [Concomitant]
     Active Substance: METOPROLOL

REACTIONS (6)
  - Confusional state [None]
  - Dyspnoea [None]
  - Infection [None]
  - Fatigue [None]
  - Dyspnoea [None]
  - Product dose omission issue [None]
